FAERS Safety Report 24819239 (Version 1)
Quarter: 2025Q1

REPORT INFORMATION
  Report Type: Spontaneous
  Country: US (occurrence: US)
  Receive Date: 20250108
  Receipt Date: 20250108
  Transmission Date: 20250408
  Serious: Yes (Hospitalization, Other)
  Sender: GLAND PHARMA LTD
  Company Number: US-GLANDPHARMA-US-2024GLNLIT01334

PATIENT
  Age: 63 Year
  Sex: Female

DRUGS (3)
  1. DESMOPRESSIN ACETATE [Suspect]
     Active Substance: DESMOPRESSIN ACETATE
     Indication: Diabetes insipidus
     Route: 048
  2. DESMOPRESSIN ACETATE [Suspect]
     Active Substance: DESMOPRESSIN ACETATE
  3. SODIUM [Concomitant]
     Active Substance: SODIUM
     Indication: Product used for unknown indication
     Route: 065

REACTIONS (3)
  - Renal injury [Unknown]
  - Nephrogenic diabetes insipidus [Unknown]
  - Drug ineffective [Unknown]
